FAERS Safety Report 13837012 (Version 1)
Quarter: 2017Q3

REPORT INFORMATION
  Report Type: Spontaneous
  Country: US (occurrence: US)
  Receive Date: 20170804
  Receipt Date: 20170804
  Transmission Date: 20171127
  Serious: No
  Sender: FDA-Public Use
  Company Number: US-ROCHE-1045572

PATIENT
  Age: 88 Year
  Sex: Female

DRUGS (1)
  1. BONIVA [Suspect]
     Active Substance: IBANDRONATE SODIUM
     Indication: PRODUCT USED FOR UNKNOWN INDICATION

REACTIONS (7)
  - Upper respiratory tract congestion [Unknown]
  - Arthralgia [Unknown]
  - Pain [Unknown]
  - Vasospasm [Unknown]
  - Headache [Unknown]
  - Gait disturbance [Unknown]
  - Lower respiratory tract congestion [Unknown]
